FAERS Safety Report 20411066 (Version 1)
Quarter: 2022Q1

REPORT INFORMATION
  Report Type: Spontaneous
  Country: US (occurrence: None)
  Receive Date: 20220201
  Receipt Date: 20220201
  Transmission Date: 20220424
  Serious: Yes (Death, Life-Threatening, Other)
  Sender: FDA-Public Use
  Company Number: None

PATIENT
  Age: 66 Year
  Sex: Female
  Weight: 114.3 kg

DRUGS (11)
  1. TRULICITY [Suspect]
     Active Substance: DULAGLUTIDE
     Indication: Type 2 diabetes mellitus
     Dosage: OTHER FREQUENCY : WEEKLY;?
     Route: 058
     Dates: start: 20190911, end: 20211018
  2. TRESIBA [Concomitant]
     Active Substance: INSULIN DEGLUDEC
     Dates: start: 20210421, end: 20211101
  3. METFORMIN [Concomitant]
     Active Substance: METFORMIN HYDROCHLORIDE
     Dates: start: 20170717, end: 20211101
  4. vitamin D2 50,000u [Concomitant]
     Dates: start: 20200309, end: 20211101
  5. PANTOPRAZOLE [Concomitant]
     Active Substance: PANTOPRAZOLE
     Dates: start: 20191202, end: 20211101
  6. LEVOTHYROXINE [Concomitant]
     Active Substance: LEVOTHYROXINE
     Dates: start: 20180809, end: 20211101
  7. HYDROCHLOROTHIAZIDE [Concomitant]
     Active Substance: HYDROCHLOROTHIAZIDE
     Dates: start: 20161213, end: 20211101
  8. ROPINIROLE [Concomitant]
     Active Substance: ROPINIROLE
     Dates: start: 20170116, end: 20211101
  9. CARVEDILOL [Concomitant]
     Active Substance: CARVEDILOL
     Dates: start: 20180726, end: 20211101
  10. PAROXETINE [Concomitant]
     Active Substance: PAROXETINE
     Dates: start: 20170727, end: 20211101
  11. TRAMADOL [Concomitant]
     Active Substance: TRAMADOL
     Dates: end: 20211101

REACTIONS (1)
  - Pancreatic carcinoma [None]

NARRATIVE: CASE EVENT DATE: 20211018
